FAERS Safety Report 24335806 (Version 1)
Quarter: 2024Q3

REPORT INFORMATION
  Report Type: Spontaneous
  Country: US (occurrence: US)
  Receive Date: 20240919
  Receipt Date: 20240919
  Transmission Date: 20241017
  Serious: Yes (Other)
  Sender: LUPIN
  Company Number: US-LUPIN PHARMACEUTICALS INC.-2024-09049

PATIENT
  Age: 24 Year
  Sex: Male

DRUGS (8)
  1. LURASIDONE [Suspect]
     Active Substance: LURASIDONE
     Indication: Bipolar II disorder
     Dosage: 20 MILLIGRAM, QD
     Route: 065
  2. LURASIDONE [Suspect]
     Active Substance: LURASIDONE
     Indication: Bipolar disorder
  3. CARIPRAZINE [Suspect]
     Active Substance: CARIPRAZINE
     Indication: Bipolar II disorder
     Dosage: 1.5 MILLIGRAM
     Route: 065
  4. CARIPRAZINE [Suspect]
     Active Substance: CARIPRAZINE
     Indication: Bipolar disorder
  5. LUMATEPERONE [Suspect]
     Active Substance: LUMATEPERONE
     Indication: Bipolar II disorder
     Dosage: 42 MILLIGRAM
     Route: 065
  6. LUMATEPERONE [Suspect]
     Active Substance: LUMATEPERONE
     Indication: Bipolar disorder
     Dosage: 21 MILLIGRAM, QD
     Route: 065
  7. ALBUTEROL [Concomitant]
     Active Substance: ALBUTEROL
     Indication: Asthma
     Dosage: UNK
     Route: 065
  8. INTERLEUKIN 4 (HUMAN) [Concomitant]
     Indication: Asthma
     Dosage: UNK
     Route: 065

REACTIONS (1)
  - Asthma [Not Recovered/Not Resolved]
